FAERS Safety Report 6503156-X (Version None)
Quarter: 2009Q4

REPORT INFORMATION
  Report Type: 
  Country: None (occurrence: None)
  Receive Date: 20091217
  Receipt Date: 20091208
  Transmission Date: 20100525
  Serious: Yes (Hospitalization, Other)
  Sender: FDA-Public Use
  Company Number: US-ALEXION-A200901023

PATIENT
  Sex: Male

DRUGS (10)
  1. SOLIRIS 300MG [Suspect]
     Indication: PAROXYSMAL NOCTURNAL HAEMOGLOBINURIA
     Dosage: 600 MG, QW X 4W
     Route: 042
     Dates: start: 20071016, end: 20091027
  2. SOLIRIS 300MG [Suspect]
     Dosage: 900 MG, Q2W
     Route: 042
     Dates: start: 20091023
  3. AUGMENTIN '125' [Concomitant]
     Indication: BRONCHITIS
     Dosage: UNK
     Dates: start: 20091128
  4. TOPROL-XL [Concomitant]
     Dosage: UNK
     Route: 048
  5. IRON [Concomitant]
     Dosage: UNK
     Route: 048
  6. COUMADIN [Concomitant]
     Dosage: UNK
     Route: 048
  7. FOLIC ACID [Concomitant]
     Dosage: UNK
     Route: 048
  8. FIORICET [Concomitant]
     Dosage: UNK
     Route: 048
  9. MULTIVITAMIN                       /00831701/ [Concomitant]
     Dosage: UNK
     Route: 048
  10. ARANESP [Concomitant]
     Dosage: 200 UG, Q2W

REACTIONS (4)
  - ANAEMIA [None]
  - BRONCHITIS [None]
  - HEADACHE [None]
  - PNEUMONIA [None]
